FAERS Safety Report 23132375 (Version 1)
Quarter: 2023Q4

REPORT INFORMATION
  Report Type: Other
  Country: IT (occurrence: IT)
  Receive Date: 20231101
  Receipt Date: 20231101
  Transmission Date: 20240110
  Serious: Yes (Other)
  Sender: FDA-Public Use
  Company Number: IT-VELOXIS PHARMACEUTICALS, INC.-2023-VEL-00659

PATIENT
  Age: 43 Year
  Sex: Female

DRUGS (2)
  1. MYCOPHENOLATE MOFETIL [Suspect]
     Active Substance: MYCOPHENOLATE MOFETIL
     Indication: Renal transplant
     Route: 065
  2. TACROLIMUS [Suspect]
     Active Substance: TACROLIMUS
     Indication: Renal transplant
     Route: 065

REACTIONS (4)
  - Renal tubular necrosis [Unknown]
  - Glomerulonephritis [Unknown]
  - Complications of transplanted kidney [Unknown]
  - Transplant rejection [Unknown]
